FAERS Safety Report 15746618 (Version 2)
Quarter: 2019Q1

REPORT INFORMATION
  Report Type: Spontaneous
  Country: US (occurrence: US)
  Receive Date: 20181220
  Receipt Date: 20190310
  Transmission Date: 20190417
  Serious: Yes (Other)
  Sender: FDA-Public Use
  Company Number: US-PRINSTON PHARMACEUTICAL INC.-2018PRN01349

PATIENT
  Sex: Female
  Weight: 72.56 kg

DRUGS (2)
  1. GLUCOPHAGE [Concomitant]
     Active Substance: METFORMIN HYDROCHLORIDE
     Dosage: 500 MG, 1X/DAY
  2. VALSARTAN. [Suspect]
     Active Substance: VALSARTAN
     Indication: HYPERTENSION
     Dosage: 40 MG, 2X/DAY
     Route: 048
     Dates: end: 2019

REACTIONS (14)
  - Pulmonary mass [Not Recovered/Not Resolved]
  - Fatigue [Not Recovered/Not Resolved]
  - Arthralgia [Recovering/Resolving]
  - Oropharyngeal pain [Recovering/Resolving]
  - Diarrhoea [Recovered/Resolved]
  - Vomiting [Recovered/Resolved]
  - Constipation [Recovered/Resolved]
  - Joint swelling [Recovering/Resolving]
  - Dehydration [Recovered/Resolved]
  - Headache [Recovering/Resolving]
  - Nasal congestion [Recovering/Resolving]
  - Abdominal pain upper [Recovered/Resolved]
  - Chronic obstructive pulmonary disease [Recovered/Resolved]
  - Recalled product administered [Recovered/Resolved]
